FAERS Safety Report 21884881 (Version 1)
Quarter: 2023Q1

REPORT INFORMATION
  Report Type: Spontaneous
  Country: US (occurrence: US)
  Receive Date: 20230119
  Receipt Date: 20230119
  Transmission Date: 20230418
  Serious: Yes (Death, Life-Threatening, Other)
  Sender: FDA-Public Use
  Company Number: US-PFIZER INC-PV202300011132

PATIENT

DRUGS (1)
  1. METHOTREXATE SODIUM [Suspect]
     Active Substance: METHOTREXATE SODIUM
     Indication: Non-Hodgkin^s lymphoma
     Dosage: CONTINUOUS INTRA-ARTERIAL PERFUSION OF THE INTERNAL CAROTID ARTERY (INTRACAROTID INFUSION)
     Route: 013

REACTIONS (2)
  - Brain injury [Fatal]
  - Off label use [Unknown]
